FAERS Safety Report 6681010-0 (Version None)
Quarter: 2010Q2

REPORT INFORMATION
  Report Type: 
  Country: None (occurrence: None)
  Receive Date: 20100414
  Receipt Date: 20100414
  Transmission Date: 20101027
  Serious: Yes (Death, Hospitalization, Other)
  Sender: FDA-Public Use
  Company Number: US-ABBOTT-09P-163-0603499-00

PATIENT
  Sex: Male
  Weight: 97.61 kg

DRUGS (3)
  1. HUMIRA [Suspect]
     Indication: PSORIATIC ARTHROPATHY
     Dates: start: 20090225, end: 20090412
  2. HUMIRA [Suspect]
     Dates: start: 20090605
  3. PREDNISONE [Concomitant]
     Indication: DRUG USE FOR UNKNOWN INDICATION
     Dosage: 20-30 MG DAILY
     Dates: start: 20090101, end: 20090701

REACTIONS (10)
  - COMPUTERISED TOMOGRAM ABNORMAL [None]
  - HEADACHE [None]
  - INFLUENZA LIKE ILLNESS [None]
  - INTERSTITIAL LUNG DISEASE [None]
  - OEDEMA PERIPHERAL [None]
  - PAIN [None]
  - PNEUMONIA [None]
  - PULMONARY FIBROSIS [None]
  - SKIN DISORDER [None]
  - VISION BLURRED [None]
